FAERS Safety Report 5586936-7 (Version None)
Quarter: 2008Q1

REPORT INFORMATION
  Report Type: 
  Country: None (occurrence: None)
  Receive Date: 20080110
  Receipt Date: 20080107
  Transmission Date: 20080703
  Serious: Yes (Death, Hospitalization)
  Sender: FDA-Public Use
  Company Number: GB-TEVA-165528ISR

PATIENT
  Age: 25 Year
  Sex: Male

DRUGS (11)
  1. IBUPROFEN [Suspect]
     Indication: PAIN IN EXTREMITY
  2. CLARITHROMYCIN [Suspect]
  3. CIPROFLOXACIN [Suspect]
  4. LAMIVUDINE + ZIDOVUDINE [Suspect]
     Indication: HIV INFECTION
  5. LAMIVUDINE + ZIDOVUDINE [Suspect]
  6. EFAVIRENZ [Suspect]
     Indication: HIV INFECTION
  7. EFAVIRENZ [Suspect]
  8. TENOFOVIR DISOPROXIL FUMARATE [Suspect]
  9. NEVIRAPINE [Suspect]
  10. BACTRIM [Concomitant]
     Indication: PROPHYLAXIS
  11. LOPERAMIDE HCL [Concomitant]

REACTIONS (1)
  - VANISHING BILE DUCT SYNDROME [None]
